APPROVED DRUG PRODUCT: ALCLOMETASONE DIPROPIONATE
Active Ingredient: ALCLOMETASONE DIPROPIONATE
Strength: 0.05%
Dosage Form/Route: CREAM;TOPICAL
Application: A079061 | Product #001
Applicant: GLENMARK PHARMACEUTICALS LTD
Approved: Jun 23, 2009 | RLD: No | RS: No | Type: DISCN